FAERS Safety Report 20653647 (Version 1)
Quarter: 2022Q1

REPORT INFORMATION
  Report Type: Spontaneous
  Country: TR (occurrence: TR)
  Receive Date: 20220330
  Receipt Date: 20220330
  Transmission Date: 20220424
  Serious: No
  Sender: FDA-Public Use
  Company Number: TR-TOLMAR, INC.-21TR032041

PATIENT
  Sex: Male

DRUGS (2)
  1. ELIGARD [Suspect]
     Active Substance: LEUPROLIDE ACETATE
     Indication: Metastases to bone
     Dosage: 45 MILLIGRAM
     Dates: start: 202109
  2. ELIGARD [Suspect]
     Active Substance: LEUPROLIDE ACETATE
     Dosage: 45 MILLIGRAM
     Dates: start: 202103

REACTIONS (3)
  - Prostatic specific antigen increased [Unknown]
  - Blood testosterone increased [Unknown]
  - Drug ineffective [Unknown]
